FAERS Safety Report 7318802-0 (Version None)
Quarter: 2011Q1

REPORT INFORMATION
  Report Type: 
  Country: None (occurrence: None)
  Receive Date: 20110228
  Receipt Date: 20100707
  Transmission Date: 20110831
  Serious: No
  Sender: FDA-Public Use
  Company Number: A0866939A

PATIENT
  Age: 32 Year
  Sex: Female

DRUGS (3)
  1. IMITREX [Suspect]
     Indication: MIGRAINE
     Route: 058
     Dates: start: 20011001
  2. NO CONCURRENT MEDICATION [Concomitant]
  3. IMITREX [Suspect]
     Dosage: 1TAB UNKNOWN
     Route: 048
     Dates: start: 20011003

REACTIONS (2)
  - CHEST DISCOMFORT [None]
  - HEART RATE INCREASED [None]
